FAERS Safety Report 9458581 (Version 1)
Quarter: 2013Q3

REPORT INFORMATION
  Report Type: Spontaneous
  Country: US (occurrence: None)
  Receive Date: 20130813
  Receipt Date: 20130813
  Transmission Date: 20140515
  Serious: Yes (Other)
  Sender: FDA-Public Use
  Company Number: None

PATIENT
  Age: 56 Year
  Sex: Male
  Weight: 84.1 kg

DRUGS (13)
  1. MYFORTIC [Suspect]
     Indication: RENAL TRANSPLANT
     Route: 048
  2. PROGRAF [Suspect]
     Dosage: PROGRAF 1MG CAPSULE AM-2CAPS PM-1CAP BY MOUTH
     Route: 048
  3. AMLODIPINE [Concomitant]
  4. BABY ASPIRIN [Concomitant]
  5. BACTRIM [Concomitant]
  6. MAGNESIUM [Concomitant]
  7. MEDRO [Concomitant]
  8. MYFORTIC [Concomitant]
  9. NEPHROCAPS [Concomitant]
  10. PROGRAF [Concomitant]
  11. RAMIPRIL [Concomitant]
  12. VITAMIN C [Concomitant]
  13. ZEMPLAR [Suspect]

REACTIONS (1)
  - Skin cancer [None]
